FAERS Safety Report 9847568 (Version 2)
Quarter: 2014Q1

REPORT INFORMATION
  Report Type: Report from Study
  Country: CA (occurrence: CA)
  Receive Date: 20140128
  Receipt Date: 20140203
  Transmission Date: 20141002
  Serious: Yes (Other)
  Sender: FDA-Public Use
  Company Number: CA-ROCHE-1339616

PATIENT
  Age: 47 Year
  Sex: Female
  Weight: 82 kg

DRUGS (7)
  1. XOLAIR [Suspect]
     Indication: ASTHMA
     Route: 058
     Dates: start: 20120822
  2. ZENHALE [Concomitant]
  3. SPIRIVA [Concomitant]
  4. OMNARIS [Concomitant]
  5. RANITIDINE [Concomitant]
  6. ALVESCO [Concomitant]
  7. SALBUTAMOL [Concomitant]

REACTIONS (7)
  - Road traffic accident [Unknown]
  - Headache [Unknown]
  - Weight increased [Unknown]
  - Panic reaction [Unknown]
  - Confusional state [Unknown]
  - Pain [Unknown]
  - Feeling abnormal [Unknown]
